FAERS Safety Report 8728326 (Version 4)
Quarter: 2014Q4

REPORT INFORMATION
  Report Type: Spontaneous
  Country: US (occurrence: US)
  Receive Date: 20120817
  Receipt Date: 20141002
  Transmission Date: 20150529
  Serious: Yes (Hospitalization)
  Sender: FDA-Public Use
  Company Number: US-BAYER-2012-082708

PATIENT
  Age: 43 Year
  Sex: Female
  Weight: 75 kg

DRUGS (24)
  1. GABAPENTIN. [Concomitant]
     Active Substance: GABAPENTIN
     Dosage: 100 MG, TID
     Route: 048
     Dates: start: 20080912
  2. DIFLUCAN [Concomitant]
     Active Substance: FLUCONAZOLE
  3. ZOCOR [Concomitant]
     Active Substance: SIMVASTATIN
  4. DEPO-MEDROL [Concomitant]
     Active Substance: METHYLPREDNISOLONE ACETATE
     Dosage: UNK
  5. PREDNISONE. [Concomitant]
     Active Substance: PREDNISONE
     Dosage: UNK
     Route: 048
  6. COMPAZINE [Concomitant]
     Active Substance: PROCHLORPERAZINE MALEATE
     Dosage: 10 MG, UNK
  7. LORCET [Concomitant]
     Active Substance: ACETAMINOPHEN\HYDROCODONE BITARTRATE
  8. YAZ [Suspect]
     Active Substance: DROSPIRENONE\ETHINYL ESTRADIOL
     Indication: CONTRACEPTION
     Dosage: UNK
     Route: 048
     Dates: start: 20070413, end: 20080927
  9. MARCAINE [Concomitant]
     Active Substance: BUPIVACAINE HYDROCHLORIDE
     Dosage: UNK
  10. LIDOCAINE. [Concomitant]
     Active Substance: LIDOCAINE
     Dosage: UNK
  11. EXCEDRIN MIGRAINE [Concomitant]
     Active Substance: ACETAMINOPHEN\ASPIRIN\CAFFEINE
  12. FENTANYL. [Concomitant]
     Active Substance: FENTANYL
     Route: 042
  13. NEURONTIN [Concomitant]
     Active Substance: GABAPENTIN
     Dosage: 100 MG, TID
  14. YASMIN [Suspect]
     Active Substance: DROSPIRENONE\ETHINYL ESTRADIOL
     Indication: CONTRACEPTION
     Dosage: UNK
     Route: 048
     Dates: start: 2002, end: 200603
  15. VERSED [Concomitant]
     Active Substance: MIDAZOLAM HYDROCHLORIDE
     Dosage: UNK
     Route: 042
  16. HYDROCODONE [Concomitant]
     Active Substance: HYDROCODONE
     Dosage: 7.5/650 MG ONE QID
     Dates: start: 20080528
  17. NILSTAT [Concomitant]
     Active Substance: NYSTATIN
     Dosage: 120 ML, QID
     Route: 048
  18. HYDROCODONE BIT/APAP [Concomitant]
     Active Substance: ACETAMINOPHEN\HYDROCODONE BITARTRATE
     Dosage: 7.5/650 MG, QID PRN
     Route: 048
     Dates: start: 20080808, end: 20080901
  19. METOPROLOL TARTRATE. [Concomitant]
     Active Substance: METOPROLOL TARTRATE
     Dosage: UNK
     Dates: start: 2008
  20. PLAVIX [Concomitant]
     Active Substance: CLOPIDOGREL BISULFATE
  21. DECADRON [Concomitant]
     Active Substance: DEXAMETHASONE
     Dosage: 10 MG, UNK
     Route: 042
     Dates: start: 20080927
  22. IBUPROFEN. [Concomitant]
     Active Substance: IBUPROFEN
     Route: 048
  23. NYSTATIN. [Concomitant]
     Active Substance: NYSTATIN
     Indication: ANTIFUNGAL TREATMENT
     Dosage: SWISH AND SWALLOW 4 ML 4X DAILY
     Route: 048
     Dates: start: 20080917
  24. AUGMENTIN [Concomitant]
     Active Substance: AMOXICILLIN\CLAVULANATE POTASSIUM

REACTIONS (14)
  - Brain mass [None]
  - Aphasia [Not Recovered/Not Resolved]
  - Pain [Not Recovered/Not Resolved]
  - Brain oedema [None]
  - Visual field defect [Not Recovered/Not Resolved]
  - Injury [Not Recovered/Not Resolved]
  - Hemianopia homonymous [Not Recovered/Not Resolved]
  - Amnesia [Not Recovered/Not Resolved]
  - Headache [Not Recovered/Not Resolved]
  - Pain [None]
  - Emotional distress [None]
  - Cerebrovascular accident [Not Recovered/Not Resolved]
  - General physical health deterioration [Not Recovered/Not Resolved]
  - Anxiety [None]

NARRATIVE: CASE EVENT DATE: 2008
